FAERS Safety Report 9764691 (Version 2)
Quarter: 2013Q4

REPORT INFORMATION
  Report Type: Spontaneous
  Country: BR (occurrence: BR)
  Receive Date: 20131217
  Receipt Date: 20131217
  Transmission Date: 20140711
  Serious: Yes (Death)
  Sender: FDA-Public Use
  Company Number: BR-009507513-1310BRA013557

PATIENT
  Sex: Female

DRUGS (1)
  1. ZENHALE [Suspect]
     Indication: ASTHMA
     Dosage: UNK
     Route: 055
     Dates: start: 20131025

REACTIONS (3)
  - Death [Fatal]
  - Dyspnoea [Unknown]
  - Cough [Unknown]
